FAERS Safety Report 8914291 (Version 1)
Quarter: 2012Q4

REPORT INFORMATION
  Report Type: 
  Country: AT (occurrence: AT)
  Receive Date: 20121116
  Receipt Date: 20121116
  Transmission Date: 20130627
  Serious: Yes (Hospitalization)
  Sender: FDA-Public Use
  Company Number: AT-US-EMD SERONO, INC.-7173429

PATIENT
  Age: 39 Year
  Sex: Female
  Weight: 63 kg

DRUGS (2)
  1. CETROTIDE [Suspect]
     Indication: IN VITRO FERTILISATION
     Dosage: 0.1 mg
     Route: 058
     Dates: start: 20120829, end: 20120914
  2. MENOPUR [Suspect]
     Indication: IN VITRO FERTILISATION
     Dosage: 75 IU
     Route: 058
     Dates: start: 20120824, end: 20120913

REACTIONS (3)
  - Respiratory disorder [Recovered/Resolved]
  - Pelvic fluid collection [Recovered/Resolved]
  - Ovarian hyperstimulation syndrome [Recovered/Resolved]
